FAERS Safety Report 18573947 (Version 1)
Quarter: 2020Q4

REPORT INFORMATION
  Report Type: Spontaneous
  Country: US (occurrence: US)
  Receive Date: 20201202
  Receipt Date: 20201202
  Transmission Date: 20210114
  Serious: No
  Sender: FDA-Public Use
  Company Number: None

PATIENT
  Age: 73 Year
  Sex: Male
  Weight: 80.74 kg

DRUGS (2)
  1. VARENICLINE (VARENICLINE 1MG TAB) [Suspect]
     Active Substance: VARENICLINE
     Route: 048
     Dates: start: 20200224, end: 20200313
  2. BUPROPION (BUPROPION HCL 150MG 12HR TAB, SA) [Suspect]
     Active Substance: BUPROPION HYDROCHLORIDE
     Indication: SMOKING CESSATION THERAPY
     Route: 048
     Dates: start: 20191104, end: 20200313

REACTIONS (1)
  - Seizure [None]

NARRATIVE: CASE EVENT DATE: 20200622
